FAERS Safety Report 8820061 (Version 1)
Quarter: 2012Q4

REPORT INFORMATION
  Report Type: 
  Country: AR (occurrence: AR)
  Receive Date: 20121002
  Receipt Date: 20121002
  Transmission Date: 20130627
  Serious: Yes (Hospitalization)
  Sender: FDA-Public Use
  Company Number: PHHY2012AR084369

PATIENT
  Sex: Male

DRUGS (1)
  1. STARLIX [Suspect]
     Indication: DIABETES MELLITUS
     Dosage: 2 DF, daily
     Route: 048
     Dates: start: 200107, end: 201205

REACTIONS (1)
  - Cardiac disorder [Recovered/Resolved]
